FAERS Safety Report 7574657-0 (Version None)
Quarter: 2011Q2

REPORT INFORMATION
  Report Type: 
  Country: None (occurrence: None)
  Receive Date: 20110627
  Receipt Date: 20101208
  Transmission Date: 20111010
  Serious: Yes (Other)
  Sender: FDA-Public Use
  Company Number: US-TYCO HEALTHCARE/MALLINCKRODT-T201002401

PATIENT
  Age: 40 Year
  Sex: Female

DRUGS (2)
  1. METHADOSE [Suspect]
     Dosage: UNK
  2. TRAMADOL HCL [Suspect]
     Indication: BACK PAIN
     Dosage: 50 MG, BID, PRN
     Route: 048

REACTIONS (2)
  - DRUG DIVERSION [None]
  - CONVULSION [None]
